FAERS Safety Report 7545849-1 (Version None)
Quarter: 2011Q2

REPORT INFORMATION
  Report Type: 
  Country: None (occurrence: None)
  Receive Date: 20110524
  Receipt Date: 20110304
  Transmission Date: 20111010
  Serious: No
  Sender: FDA-Public Use
  Company Number: 028841

PATIENT
  Sex: Male

DRUGS (1)
  1. CIMZIA [Suspect]
     Indication: CROHN'S DISEASE
     Dosage: (LAST DOSE ON 04-MAR-2011 SUBCUTANEOUS)
     Route: 058
     Dates: start: 20091202

REACTIONS (2)
  - INTERNAL INJURY [None]
  - BACK INJURY [None]
